FAERS Safety Report 21850520 (Version 2)
Quarter: 2023Q1

REPORT INFORMATION
  Report Type: Spontaneous
  Country: IN (occurrence: IN)
  Receive Date: 20230111
  Receipt Date: 20230124
  Transmission Date: 20230417
  Serious: Yes (Other)
  Sender: FDA-Public Use
  Company Number: IN-JNJFOC-20230110302

PATIENT
  Age: 30 Year
  Sex: Male

DRUGS (2)
  1. EVITHROM [Suspect]
     Active Substance: THROMBIN HUMAN
     Indication: Haemostasis
     Route: 061
  2. GELFOAM [Concomitant]
     Active Substance: GELATIN\THROMBIN HUMAN
     Indication: Haemostasis

REACTIONS (1)
  - Post procedural haemorrhage [Recovered/Resolved]
